FAERS Safety Report 25995544 (Version 1)
Quarter: 2025Q4

REPORT INFORMATION
  Report Type: Spontaneous
  Country: GB (occurrence: GB)
  Receive Date: 20251104
  Receipt Date: 20251104
  Transmission Date: 20260117
  Serious: Yes (Other)
  Sender: MYLAN
  Company Number: None

PATIENT
  Age: 21 Year
  Sex: Female

DRUGS (5)
  1. MIRTAZAPINE [Suspect]
     Active Substance: MIRTAZAPINE
     Indication: Product used for unknown indication
     Dosage: 45 MILLIGRAM, PM (45MG NOCTE)
  2. DESOGESTREL [Concomitant]
     Active Substance: DESOGESTREL
     Dosage: UNK
  3. MIDODRINE [Concomitant]
     Active Substance: MIDODRINE
     Dosage: UNK
  4. OMEPRAZOLE [Concomitant]
     Active Substance: OMEPRAZOLE
     Dosage: UNK
  5. FOLIC ACID [Concomitant]
     Active Substance: FOLIC ACID
     Dosage: UNK

REACTIONS (1)
  - Seizure [Not Recovered/Not Resolved]

NARRATIVE: CASE EVENT DATE: 20251029
